FAERS Safety Report 15924902 (Version 2)
Quarter: 2019Q1

REPORT INFORMATION
  Report Type: Spontaneous
  Country: JP (occurrence: JP)
  Receive Date: 20190206
  Receipt Date: 20190212
  Transmission Date: 20190417
  Serious: Yes (Other)
  Sender: FDA-Public Use
  Company Number: PHJP2019JP001344

PATIENT
  Sex: Female

DRUGS (1)
  1. METHYLPHENIDATE HYDROCHLORIDE. [Suspect]
     Active Substance: METHYLPHENIDATE HYDROCHLORIDE
     Indication: DEPRESSION
     Dosage: 180 MG, UNK WITHIN SEVERAL HOURS
     Route: 055

REACTIONS (5)
  - Intentional product misuse [Unknown]
  - Incorrect dosage administered [Unknown]
  - Hallucination, visual [Unknown]
  - Incorrect route of product administration [Unknown]
  - Schizophrenia [Unknown]
